FAERS Safety Report 17125544 (Version 2)
Quarter: 2020Q1

REPORT INFORMATION
  Report Type: Spontaneous
  Country: US (occurrence: US)
  Receive Date: 20191207
  Receipt Date: 20200305
  Transmission Date: 20200409
  Serious: No
  Sender: FDA-Public Use
  Company Number: US-009507513-1912USA002599

PATIENT
  Age: 45 Year
  Sex: Female

DRUGS (2)
  1. BELSOMRA [Suspect]
     Active Substance: SUVOREXANT
     Indication: STIFF PERSON SYNDROME
     Dosage: 20 MILLIGRAM AT A TIME
     Route: 048
  2. BELSOMRA [Suspect]
     Active Substance: SUVOREXANT
     Indication: PAIN
     Dosage: 40 MILLIGRAM AT NIGHT
     Route: 048

REACTIONS (10)
  - Inappropriate schedule of product administration [Unknown]
  - Malaise [Unknown]
  - Product prescribing issue [Unknown]
  - Therapeutic product effect incomplete [Unknown]
  - Pain [Unknown]
  - Behaviour disorder [Unknown]
  - Adverse drug reaction [Unknown]
  - Mental disorder [Unknown]
  - Product use in unapproved indication [Unknown]
  - Amnesia [Unknown]

NARRATIVE: CASE EVENT DATE: 2018
